FAERS Safety Report 7865410-9 (Version None)
Quarter: 2011Q4

REPORT INFORMATION
  Report Type: 
  Country: None (occurrence: None)
  Receive Date: 20111028
  Receipt Date: 20101216
  Transmission Date: 20120403
  Serious: No
  Sender: FDA-Public Use
  Company Number: US-GLAXOSMITHKLINE-A0900164A

PATIENT
  Age: 81 Year
  Sex: Male

DRUGS (9)
  1. COREG [Concomitant]
  2. LOTREL [Concomitant]
  3. ADVAIR DISKUS 100/50 [Suspect]
     Indication: CHRONIC OBSTRUCTIVE PULMONARY DISEASE
     Dosage: 1PUFF TWICE PER DAY
     Route: 055
     Dates: start: 20100701
  4. METFORMIN HCL [Concomitant]
  5. GLIMEPIRIDE [Concomitant]
  6. ACTOS [Concomitant]
  7. SPIRIVA [Concomitant]
  8. HYDROCHLOROTHIAZIDE [Concomitant]
  9. SIMVASTATIN [Concomitant]

REACTIONS (1)
  - HICCUPS [None]
